FAERS Safety Report 8923322 (Version 1)
Quarter: 2012Q4

REPORT INFORMATION
  Report Type: 
  Country: US (occurrence: US)
  Receive Date: 20121123
  Receipt Date: 20121123
  Transmission Date: 20130627
  Serious: Yes (Death)
  Sender: FDA-Public Use
  Company Number: US-JNJFOC-20120111678

PATIENT
  Age: 54 Year
  Sex: Male

DRUGS (2)
  1. DURAGESIC [Suspect]
     Indication: PAIN
     Route: 062
  2. ALL OTHER THERAPEUTICS [Suspect]
     Indication: PRODUCT USED FOR UNKNOWN INDICATION
     Route: 065

REACTIONS (1)
  - Toxicity to various agents [Fatal]
